FAERS Safety Report 23404802 (Version 1)
Quarter: 2024Q1

REPORT INFORMATION
  Report Type: Spontaneous
  Country: AU (occurrence: AU)
  Receive Date: 20240116
  Receipt Date: 20240116
  Transmission Date: 20240410
  Serious: Yes (Death)
  Sender: FDA-Public Use
  Company Number: AU-LUNDBECK-DKLU3072476

PATIENT
  Age: 29 Year
  Sex: Female

DRUGS (4)
  1. CITALOPRAM [Interacting]
     Active Substance: CITALOPRAM HYDROBROMIDE
     Indication: Product used for unknown indication
     Route: 065
  2. HEROIN [Interacting]
     Active Substance: DIAMORPHINE
     Indication: Product used for unknown indication
     Route: 065
  3. COCAINE [Interacting]
     Active Substance: COCAINE
     Indication: Product used for unknown indication
     Route: 065
  4. MORPHINE [Interacting]
     Active Substance: MORPHINE
     Indication: Product used for unknown indication
     Route: 065

REACTIONS (3)
  - Toxicity to various agents [Fatal]
  - Serotonin syndrome [Fatal]
  - Drug interaction [Fatal]
